FAERS Safety Report 7496125-7 (Version None)
Quarter: 2011Q2

REPORT INFORMATION
  Report Type: 
  Country: None (occurrence: None)
  Receive Date: 20110523
  Receipt Date: 20110510
  Transmission Date: 20111010
  Serious: Yes (Other)
  Sender: FDA-Public Use
  Company Number: PHHY2010US28363

PATIENT
  Sex: Female

DRUGS (19)
  1. RHINOCORT [Concomitant]
     Dosage: 32 UG, PRN
  2. NORVASC [Concomitant]
     Indication: HYPERTENSION
     Dosage: 10 MG, QD
     Route: 048
  3. LISINOPRIL [Concomitant]
     Dosage: 40 MG, QD
     Route: 048
  4. CENTRUM [Concomitant]
     Dosage: 1 DF, QD
     Route: 048
  5. ASPIRIN [Concomitant]
     Dosage: 81 MG, QD
     Route: 048
  6. METFORMIN ^COX^ [Concomitant]
     Indication: DIABETES MELLITUS
     Dosage: 500 MG DAILY
     Route: 048
  7. TRICOR [Concomitant]
     Indication: HYPERLIPIDAEMIA
     Dosage: 145 MG, QD
     Route: 048
  8. ASCORBIC ACID [Concomitant]
     Dosage: 500 MG, QD
  9. FLOVENT [Concomitant]
     Dosage: 110 UG, PRN DURING THE WINTER
  10. PROPOXYPHENE NAPSYLATE [Concomitant]
     Indication: PAIN
     Dosage: AS NEEDED
  11. DRISDOL [Concomitant]
     Dosage: 50000 U, QMO
  12. CRESTOR [Concomitant]
     Dosage: 5 MG, QD
     Route: 048
  13. ACETAMINOPHEN [Concomitant]
     Dosage: 500 MG, 2 TABLETS EVERY 4-6 HOURS AS NEEDED
  14. LIDODERM [Concomitant]
     Dosage: 5 % PATCH, DAILY ON BACK
     Route: 062
  15. RECLAST [Suspect]
     Indication: OSTEOPOROSIS
     Dosage: 5 MG, INCE YEARLY
     Route: 042
     Dates: start: 20080130, end: 20100401
  16. HYDROCHLOROTHIAZIDE [Concomitant]
     Dosage: 12.5 MG, QD
     Route: 048
  17. ALBUTEROL SULFATE AUTOHALER [Concomitant]
     Dosage: 90 UG, PRN
  18. CALCIUM CARBONATE W/VITAMIN D NOS [Concomitant]
     Dosage: 1 DF, BID
     Route: 048
  19. TOPROL-XL [Concomitant]
     Dosage: 100 MG, QD

REACTIONS (8)
  - SPINAL DISORDER [None]
  - INFLUENZA LIKE ILLNESS [None]
  - FEELING ABNORMAL [None]
  - PAIN [None]
  - SCIATICA [None]
  - MULTIPLE FRACTURES [None]
  - WEIGHT DECREASED [None]
  - NECK PAIN [None]
